FAERS Safety Report 14943701 (Version 1)
Quarter: 2018Q2

REPORT INFORMATION
  Report Type: Spontaneous
  Country: US (occurrence: US)
  Receive Date: 20180528
  Receipt Date: 20180528
  Transmission Date: 20180711
  Serious: Yes (Death)
  Sender: FDA-Public Use
  Company Number: US-ALLERGAN-1827706US

PATIENT
  Sex: Male

DRUGS (1)
  1. TEFLARO [Suspect]
     Active Substance: CEFTAROLINE FOSAMIL
     Indication: MENINGITIS
     Dosage: UNK
     Route: 065

REACTIONS (3)
  - Haemorrhage intracranial [Unknown]
  - Off label use [Unknown]
  - Death [Fatal]
